FAERS Safety Report 20569036 (Version 1)
Quarter: 2022Q1

REPORT INFORMATION
  Report Type: Report from Study
  Country: US (occurrence: None)
  Receive Date: 20220308
  Receipt Date: 20220308
  Transmission Date: 20220423
  Serious: Yes (Hospitalization, Other)
  Sender: FDA-Public Use
  Company Number: 2022A100201

PATIENT
  Sex: Female

DRUGS (2)
  1. TAGRISSO [Suspect]
     Active Substance: OSIMERTINIB
     Indication: Lung carcinoma cell type unspecified stage 0
     Dosage: 40MG BY MOUTH EVERY OTHER DAY ALTERNATING WITH 80MG
     Route: 048
     Dates: start: 202106
  2. TAGRISSO [Suspect]
     Active Substance: OSIMERTINIB
     Indication: Lung carcinoma cell type unspecified stage 0
     Dosage: 40MG BY MOUTH EVERY OTHER DAY ALTERNATING WITH 80MG
     Route: 048

REACTIONS (3)
  - Blood potassium increased [Unknown]
  - Renal failure [Unknown]
  - Product dose omission issue [Unknown]
